FAERS Safety Report 19264515 (Version 2)
Quarter: 2021Q2

REPORT INFORMATION
  Report Type: Spontaneous
  Country: US (occurrence: US)
  Receive Date: 20210517
  Receipt Date: 20210527
  Transmission Date: 20210717
  Serious: Yes (Hospitalization, Other)
  Sender: FDA-Public Use
  Company Number: US-SA-2021SA160449

PATIENT
  Age: 74 Year
  Sex: Female

DRUGS (3)
  1. LIDOCAINE. [Suspect]
     Active Substance: LIDOCAINE
     Indication: LOCAL ANAESTHESIA
     Dosage: 3 ML, 1X;  LIDOCAINE 1% WITH EPINEPHRINE 1: 100,000
  2. EPINEPHRINE. [Concomitant]
     Active Substance: EPINEPHRINE
     Dosage: LIDOCAINE 1% WITH EPINEPHRINE 1: 100,000
  3. LIDOCAINE. [Suspect]
     Active Substance: LIDOCAINE
     Dosage: 3 ML, 1X

REACTIONS (6)
  - Lagophthalmos [Recovered/Resolved]
  - Lacrimation increased [Recovered/Resolved]
  - Facial paralysis [Recovered/Resolved]
  - Eyelid ptosis [Recovered/Resolved]
  - Miosis [Recovered/Resolved]
  - Facial paresis [Recovered/Resolved]
